FAERS Safety Report 7631078-X (Version None)
Quarter: 2011Q3

REPORT INFORMATION
  Report Type: 
  Country: None (occurrence: None)
  Receive Date: 20110725
  Receipt Date: 20110712
  Transmission Date: 20111222
  Serious: Yes (Other)
  Sender: FDA-Public Use
  Company Number: US-CELGENEUS-163-CCAZA-11071280

PATIENT
  Age: 69 Year
  Sex: Male

DRUGS (1)
  1. AZACITIDINE [Suspect]
     Route: 050

REACTIONS (3)
  - PULMONARY EMBOLISM [None]
  - ACUTE FEBRILE NEUTROPHILIC DERMATOSIS [None]
  - VENOUS THROMBOSIS [None]
